FAERS Safety Report 19794537 (Version 1)
Quarter: 2021Q3

REPORT INFORMATION
  Report Type: Spontaneous
  Country: SA (occurrence: SA)
  Receive Date: 20210907
  Receipt Date: 20210907
  Transmission Date: 20211014
  Serious: No
  Sender: FDA-Public Use
  Company Number: SA-LUPIN PHARMACEUTICALS INC.-2021-16378

PATIENT
  Age: 11 Year
  Sex: Male

DRUGS (7)
  1. VANCOMYCIN [Concomitant]
     Active Substance: VANCOMYCIN
     Indication: SEPTIC SHOCK
  2. CEFTRIAXONE. [Concomitant]
     Active Substance: CEFTRIAXONE
     Indication: SEPTIC SHOCK
  3. VANCOMYCIN [Concomitant]
     Active Substance: VANCOMYCIN
     Indication: EVIDENCE BASED TREATMENT
     Dosage: UNK
     Route: 065
  4. ASPIRIN. [Concomitant]
     Active Substance: ASPIRIN
     Indication: PRODUCT USED FOR UNKNOWN INDICATION
     Dosage: UNK
     Route: 065
  5. IMMUNOGLOBULIN (IMMUNOGLOBULIN HUMAN NORMAL) [Suspect]
     Active Substance: HUMAN IMMUNOGLOBULIN G
     Indication: COVID-19
     Dosage: 2 GRAM PER KILOGRAM
     Route: 042
  6. CEFTRIAXONE. [Concomitant]
     Active Substance: CEFTRIAXONE
     Indication: EVIDENCE BASED TREATMENT
     Dosage: UNK
     Route: 065
  7. METHYLPREDNISOLONE. [Suspect]
     Active Substance: METHYLPREDNISOLONE
     Indication: COVID-19
     Dosage: 2 MILLIGRAM/KILOGRAM, QD
     Route: 065

REACTIONS (1)
  - Off label use [Unknown]
